FAERS Safety Report 5363822-9 (Version None)
Quarter: 2007Q2

REPORT INFORMATION
  Report Type: 
  Country: None (occurrence: None)
  Receive Date: 20070620
  Receipt Date: 20070608
  Transmission Date: 20071010
  Serious: Yes (Death)
  Sender: FDA-Public Use
  Company Number: JP-SANOFI-SYNTHELABO-A01200704356

PATIENT
  Sex: Female
  Weight: 57 kg

DRUGS (10)
  1. CEFOZOPRAN HYDROCHLORIDE [Concomitant]
     Dates: start: 20070317, end: 20070321
  2. LIVER EXTRACT FLAVIN ADENINE DINUCLEOTIDE [Concomitant]
     Dates: start: 20070316, end: 20070326
  3. GLYCYRRHIZIN GLYCINE CYSTEINE COMBINED DRUG [Concomitant]
     Dates: start: 20070316, end: 20070326
  4. FERRIC OXIDE SACCHARATED [Concomitant]
     Dates: start: 20070308, end: 20070326
  5. FAMOTIDINE [Concomitant]
     Dates: start: 20070305, end: 20070309
  6. CEFOTIAM HYDROCHLORIDE [Concomitant]
     Dates: start: 20070305, end: 20070309
  7. OXALIPLATIN [Suspect]
     Indication: RECTAL CANCER
     Dosage: 120 MG/BODY=82.2 MG/M2 INFUSION D1
     Route: 042
     Dates: start: 20070327, end: 20070327
  8. LEUCOVORIN CALCIUM [Concomitant]
     Dosage: 145 MG/BODY=99.3 MG/M2 INFUSION D1-2
     Route: 042
     Dates: start: 20070327, end: 20070328
  9. PIPERACILLIN SODIUM [Concomitant]
     Dates: start: 20070310, end: 20070314
  10. FLUOROURACIL [Suspect]
     Dosage: 570 MG/BODY=390.4 MG/M2 BOLUS THEN 850 MG/BODY=582.2 MG/M2 INFUSION D1-2
     Route: 042
     Dates: start: 20070327, end: 20070328

REACTIONS (1)
  - INTERSTITIAL LUNG DISEASE [None]
